FAERS Safety Report 15515098 (Version 3)
Quarter: 2018Q4

REPORT INFORMATION
  Report Type: Spontaneous
  Country: TW (occurrence: TW)
  Receive Date: 20181017
  Receipt Date: 20181203
  Transmission Date: 20190205
  Serious: Yes (Hospitalization, Other)
  Sender: FDA-Public Use
  Company Number: TW-ABBVIE-18K-153-2520903-00

PATIENT
  Age: 63 Year
  Sex: Male

DRUGS (1)
  1. MAVIRET [Suspect]
     Active Substance: GLECAPREVIR\PIBRENTASVIR
     Indication: HEPATITIS C
     Route: 048
     Dates: start: 20180904, end: 20181031

REACTIONS (5)
  - Blister [Recovering/Resolving]
  - Bone erosion [Recovering/Resolving]
  - Oedema peripheral [Recovering/Resolving]
  - Skin reaction [Recovering/Resolving]
  - Skin plaque [Recovering/Resolving]

NARRATIVE: CASE EVENT DATE: 20180927
